FAERS Safety Report 9701975 (Version 1)
Quarter: 2013Q4

REPORT INFORMATION
  Report Type: Spontaneous
  Country: DE (occurrence: None)
  Receive Date: 20131120
  Receipt Date: 20131120
  Transmission Date: 20140711
  Serious: Yes (Other)
  Sender: FDA-Public Use
  Company Number: DE-MACLEODS PHARMA-000166

PATIENT
  Age: 72 Year
  Sex: Male

DRUGS (1)
  1. AMLODIPINE [Suspect]
     Indication: HYPERTENSION

REACTIONS (11)
  - Dystonia [None]
  - Anxiety [None]
  - Akathisia [None]
  - Back pain [None]
  - Torticollis [None]
  - Dysphagia [None]
  - Muscle spasms [None]
  - Respiratory disorder [None]
  - Moaning [None]
  - Restlessness [None]
  - Gait disturbance [None]
